FAERS Safety Report 10084212 (Version 1)
Quarter: 2014Q2

REPORT INFORMATION
  Report Type: Spontaneous
  Country: US (occurrence: US)
  Receive Date: 20140417
  Receipt Date: 20140417
  Transmission Date: 20141212
  Serious: Yes (Hospitalization)
  Sender: FDA-Public Use
  Company Number: US-BAYER-2014-054937

PATIENT
  Age: 22 Year
  Sex: Female

DRUGS (1)
  1. MIRENA [Suspect]
     Dosage: 20 MCG/24HR, CONT
     Route: 015
     Dates: start: 20100630

REACTIONS (9)
  - Embedded device [None]
  - Injury [None]
  - Pain [None]
  - Nausea [None]
  - Vomiting [None]
  - Uterine abscess [None]
  - Emotional distress [None]
  - Pyrexia [None]
  - Purulent discharge [None]
